FAERS Safety Report 12472210 (Version 4)
Quarter: 2016Q3

REPORT INFORMATION
  Report Type: Spontaneous
  Country: US (occurrence: US)
  Receive Date: 20160616
  Receipt Date: 20160908
  Transmission Date: 20161109
  Serious: Yes (Death, Hospitalization)
  Sender: FDA-Public Use
  Company Number: US-JNJFOC-20160611250

PATIENT
  Age: 75 Year
  Sex: Female

DRUGS (3)
  1. XARELTO [Suspect]
     Active Substance: RIVAROXABAN
     Indication: CEREBROVASCULAR ACCIDENT PROPHYLAXIS
     Route: 048
     Dates: start: 20150818, end: 20150824
  2. XARELTO [Suspect]
     Active Substance: RIVAROXABAN
     Indication: ATRIAL FIBRILLATION
     Route: 048
     Dates: start: 20150818, end: 20150824
  3. XARELTO [Suspect]
     Active Substance: RIVAROXABAN
     Indication: THROMBOSIS PROPHYLAXIS
     Route: 048
     Dates: start: 20150818, end: 20150824

REACTIONS (6)
  - Cerebrovascular accident [Fatal]
  - Status epilepticus [Fatal]
  - Subarachnoid haemorrhage [Unknown]
  - Coagulopathy [Unknown]
  - Subdural haematoma [Unknown]
  - Haemorrhagic stroke [Unknown]

NARRATIVE: CASE EVENT DATE: 201508
